FAERS Safety Report 9467733 (Version 2)
Quarter: 2013Q3

REPORT INFORMATION
  Report Type: Spontaneous
  Country: US (occurrence: US)
  Receive Date: 20130821
  Receipt Date: 20130821
  Transmission Date: 20140515
  Serious: Yes (Death)
  Sender: FDA-Public Use
  Company Number: US-MYLANLABS-2013S1018080

PATIENT
  Age: 63 Year
  Sex: Male
  Weight: 63.5 kg

DRUGS (10)
  1. FENTANYL TRANSDERMAL SYSTEM [Suspect]
     Indication: CANCER PAIN
  2. AMBIEN [Concomitant]
     Indication: INSOMNIA
  3. CARAFATE [Concomitant]
     Indication: GASTRIC CANCER
  4. EFFEXOR [Concomitant]
     Indication: DEPRESSION
  5. LORAZEPAM [Concomitant]
     Indication: NAUSEA
  6. REGLAN [Concomitant]
     Indication: NAUSEA
  7. PROCHLORPERAZINE [Concomitant]
     Indication: NAUSEA
  8. SANCUSO [Concomitant]
     Indication: NAUSEA
  9. ZOFRAN [Concomitant]
     Indication: NAUSEA
  10. RANITIDINE [Concomitant]

REACTIONS (1)
  - Neoplasm malignant [Fatal]
